FAERS Safety Report 8609872-8 (Version None)
Quarter: 2012Q3

REPORT INFORMATION
  Report Type: 
  Country: None (occurrence: None)
  Receive Date: 20120821
  Receipt Date: 20120809
  Transmission Date: 20120928
  Serious: Yes (Other)
  Sender: FDA-Public Use
  Company Number: US-ROCHE-1061257

PATIENT
  Sex: Male
  Weight: 65.83 kg

DRUGS (3)
  1. ACCUTANE [Suspect]
     Dates: end: 19980901
  2. PROVENTIL [Concomitant]
  3. ACCUTANE [Suspect]
     Indication: ACNE
     Dates: start: 19980525, end: 19980625

REACTIONS (7)
  - CROHN'S DISEASE [None]
  - SUICIDE ATTEMPT [None]
  - BIPOLAR DISORDER [None]
  - INFLAMMATORY BOWEL DISEASE [None]
  - SUICIDAL IDEATION [None]
  - IRRITABLE BOWEL SYNDROME [None]
  - DEPRESSION [None]
